FAERS Safety Report 7734056-5 (Version None)
Quarter: 2011Q3

REPORT INFORMATION
  Report Type: 
  Country: None (occurrence: None)
  Receive Date: 20110907
  Receipt Date: 20110829
  Transmission Date: 20111222
  Serious: Yes (Other)
  Sender: FDA-Public Use
  Company Number: CR-ROCHE-799544

PATIENT
  Sex: Female

DRUGS (1)
  1. CAPECITABINE [Suspect]
     Indication: COLORECTAL CANCER
     Route: 048
     Dates: start: 20110728, end: 20110801

REACTIONS (2)
  - OROPHARYNGEAL BLISTERING [None]
  - ABDOMINAL PAIN UPPER [None]
